FAERS Safety Report 19906914 (Version 1)
Quarter: 2021Q4

REPORT INFORMATION
  Report Type: Spontaneous
  Country: KR (occurrence: KR)
  Receive Date: 20211001
  Receipt Date: 20211001
  Transmission Date: 20220303
  Serious: Yes (Death, Other)
  Sender: FDA-Public Use
  Company Number: KR-VIIV HEALTHCARE ULC-KR2021APC204064

PATIENT
  Age: 43 Year
  Sex: Male
  Weight: 60 kg

DRUGS (3)
  1. KIVEXA [Suspect]
     Active Substance: ABACAVIR SULFATE\LAMIVUDINE
     Indication: Acute HIV infection
     Dosage: 1 DF (TABLET), QD
     Route: 048
     Dates: start: 20140619, end: 20140814
  2. DARUNAVIR [Suspect]
     Active Substance: DARUNAVIR
     Indication: Acute HIV infection
     Dosage: 800 MG, QD
     Route: 048
     Dates: start: 20140619, end: 20140814
  3. RITONAVIR [Concomitant]
     Active Substance: RITONAVIR
     Indication: Acute HIV infection
     Dosage: 300 MG, QD
     Route: 048
     Dates: start: 20140618, end: 20140814

REACTIONS (2)
  - Loss of consciousness [Fatal]
  - Pneumonia [Fatal]

NARRATIVE: CASE EVENT DATE: 20140814
